FAERS Safety Report 25042039 (Version 1)
Quarter: 2025Q1

REPORT INFORMATION
  Report Type: Spontaneous
  Country: MX (occurrence: MX)
  Receive Date: 20250305
  Receipt Date: 20250305
  Transmission Date: 20250408
  Serious: Yes (Death, Life-Threatening, Hospitalization, Other)
  Sender: TORRENT PHARMA INC.
  Company Number: MX-TORRENT-00000239

PATIENT
  Age: 6 Year
  Sex: Male

DRUGS (2)
  1. LAMOTRIGINE [Suspect]
     Active Substance: LAMOTRIGINE
     Indication: Product used for unknown indication
     Dosage: ADMINISTERED EVERY 24 H (1.4 MG/KG/DAY)
     Route: 065
  2. VALPROATE MAGNESIUM [Concomitant]
     Active Substance: VALPROATE MAGNESIUM
     Indication: Cerebellar syndrome
     Route: 065

REACTIONS (29)
  - Toxic epidermal necrolysis [Fatal]
  - Systemic inflammatory response syndrome [Unknown]
  - Septic shock [Fatal]
  - Haemodynamic instability [Unknown]
  - Thrombocytopenia [Unknown]
  - Gastrointestinal haemorrhage [Unknown]
  - Hypothermia [Unknown]
  - Acute kidney injury [Unknown]
  - Coagulopathy [Unknown]
  - Hyperlactacidaemia [Unknown]
  - Hypernatraemia [Unknown]
  - Hypokalaemia [Unknown]
  - Hypocalcaemia [Unknown]
  - Hypochloraemia [Unknown]
  - Metabolic acidosis [Unknown]
  - Enterococcal infection [Fatal]
  - Acinetobacter infection [Fatal]
  - Pseudomonas infection [Fatal]
  - Multiple organ dysfunction syndrome [Fatal]
  - Cardiac arrest [Unknown]
  - Respiratory distress [Unknown]
  - Conjunctivitis [Unknown]
  - Mucosal inflammation [Unknown]
  - Normochromic normocytic anaemia [Unknown]
  - Hyperglycaemia [Unknown]
  - Neutrophilia [Unknown]
  - Lymphopenia [Unknown]
  - Acid-base balance disorder mixed [Unknown]
  - Transaminases increased [Unknown]
